FAERS Safety Report 6412620-3 (Version None)
Quarter: 2009Q4

REPORT INFORMATION
  Report Type: 
  Country: None (occurrence: None)
  Receive Date: 20091023
  Receipt Date: 20091014
  Transmission Date: 20100525
  Serious: Yes (Hospitalization)
  Sender: FDA-Public Use
  Company Number: PHHY2009GB42417

PATIENT
  Sex: Male
  Weight: 95.2 kg

DRUGS (8)
  1. SANDOSTATIN [Suspect]
     Indication: ACROMEGALY
     Dosage: 20 MG, UNK
     Route: 030
     Dates: start: 20090930
  2. SANDOSTATIN [Suspect]
     Indication: PITUITARY TUMOUR
  3. ASPIRIN [Concomitant]
     Dosage: 75 MG, UNK
     Route: 048
  4. PERINDOPRIL [Concomitant]
     Indication: HYPERTENSION
     Dosage: 8 MG, DAILY
     Route: 048
     Dates: start: 20080602
  5. AMLODIPINE [Concomitant]
     Indication: HYPERTENSION
     Dosage: 10 MG, DAILY
     Route: 048
     Dates: start: 20061127
  6. LEVOTHYROXINE SODIUM [Concomitant]
     Indication: HYPOTHYROIDISM
     Dosage: 75 UG, DAILY
     Route: 048
     Dates: start: 20020111
  7. NORPROLAC [Concomitant]
     Dosage: 75 MG, UNK
     Route: 048
  8. TESTOSTERONE (NEBIDO) [Concomitant]
     Indication: HYPOPITUITARISM
     Dosage: UNK
     Route: 030
     Dates: start: 20060410

REACTIONS (1)
  - GALLBLADDER PAIN [None]
